FAERS Safety Report 9477377 (Version 3)
Quarter: 2013Q3

REPORT INFORMATION
  Report Type: Spontaneous
  Country: US (occurrence: US)
  Receive Date: 20130826
  Receipt Date: 20130925
  Transmission Date: 20140515
  Serious: Yes (Other)
  Sender: FDA-Public Use
  Company Number: US-PFIZER INC-2013246127

PATIENT
  Sex: Male

DRUGS (4)
  1. ENBREL [Suspect]
     Dosage: UNK
  2. XELJANZ [Suspect]
     Dosage: UNK
  3. METHOTREXATE SODIUM [Suspect]
     Dosage: UNK
  4. HUMIRA [Suspect]
     Dosage: UNK

REACTIONS (2)
  - Immunodeficiency [Unknown]
  - Oropharyngeal pain [Unknown]
